FAERS Safety Report 5786252-4 (Version None)
Quarter: 2008Q2

REPORT INFORMATION
  Report Type: 
  Country: None (occurrence: None)
  Receive Date: 20080624
  Receipt Date: 20080612
  Transmission Date: 20081010
  Serious: Yes (Other)
  Sender: FDA-Public Use
  Company Number: CH-ELI_LILLY_AND_COMPANY-CH200806002974

PATIENT
  Age: 26 Year
  Sex: Male
  Weight: 88 kg

DRUGS (5)
  1. CYMBALTA [Suspect]
     Indication: DEPRESSION
     Dosage: 60 MG, DAILY (1/D)
     Route: 048
     Dates: start: 20080121
  2. CLOPIXOL [Concomitant]
     Indication: ANTISOCIAL PERSONALITY DISORDER
     Dosage: 10 MG, 3/D
     Route: 048
     Dates: start: 20070109
  3. ANDROCUR [Concomitant]
     Indication: VICTIM OF SEXUAL ABUSE
     Dosage: 50 MG, 2/D
     Route: 048
     Dates: start: 20040210
  4. AKINETON [Concomitant]
     Indication: MOVEMENT DISORDER
     Dosage: 4 MG, DAILY (1/D)
     Route: 048
     Dates: start: 20060414
  5. RISPERDAL [Concomitant]
     Indication: EMOTIONAL DISORDER
     Dosage: 50 MG, EVERY TWO WEEKS
     Route: 030
     Dates: start: 20071213

REACTIONS (2)
  - EXTRASYSTOLES [None]
  - VENTRICULAR EXTRASYSTOLES [None]
